FAERS Safety Report 11027951 (Version 2)
Quarter: 2015Q2

REPORT INFORMATION
  Report Type: Spontaneous
  Country: US (occurrence: US)
  Receive Date: 20150414
  Receipt Date: 20150525
  Transmission Date: 20150821
  Serious: No
  Sender: FDA-Public Use
  Company Number: US-JNJFOC-20120407087

PATIENT
  Age: 22 Year
  Sex: Female
  Weight: 53.52 kg

DRUGS (2)
  1. VYVANSE [Concomitant]
     Active Substance: LISDEXAMFETAMINE DIMESYLATE
     Indication: ATTENTION DEFICIT/HYPERACTIVITY DISORDER
     Route: 065
  2. ORTHO TRI CYCLEN LO [Suspect]
     Active Substance: ETHINYL ESTRADIOL\NORGESTIMATE
     Indication: CONTRACEPTION
     Route: 048
     Dates: start: 201201

REACTIONS (6)
  - Emotional disorder [Not Recovered/Not Resolved]
  - Hormone level abnormal [Not Recovered/Not Resolved]
  - Drug dose omission [Recovered/Resolved]
  - Metrorrhagia [Not Recovered/Not Resolved]
  - Nonspecific reaction [Not Recovered/Not Resolved]
  - Vaginal haemorrhage [Not Recovered/Not Resolved]

NARRATIVE: CASE EVENT DATE: 201203
